FAERS Safety Report 15187026 (Version 1)
Quarter: 2018Q3

REPORT INFORMATION
  Report Type: Report from Study
  Country: US (occurrence: US)
  Receive Date: 20180723
  Receipt Date: 20180723
  Transmission Date: 20181010
  Serious: No
  Sender: FDA-Public Use
  Company Number: US-EXELIXIS-CABO-18013386

PATIENT
  Sex: Male

DRUGS (23)
  1. VENTOLIN [Concomitant]
     Active Substance: ALBUTEROL SULFATE
     Dosage: UNK
  2. DOCUSATE [Concomitant]
     Active Substance: DOCUSATE
     Dosage: UNK
  3. NITROSTAT [Concomitant]
     Active Substance: NITROGLYCERIN
     Dosage: UNK
  4. MIRTAZAPINE. [Concomitant]
     Active Substance: MIRTAZAPINE
     Dosage: UNK
  5. SPIRIVA [Concomitant]
     Active Substance: TIOTROPIUM BROMIDE MONOHYDRATE
  6. LIPITOR [Concomitant]
     Active Substance: ATORVASTATIN CALCIUM
     Dosage: UNK
  7. HYDROCODONE [Concomitant]
     Active Substance: HYDROCODONE
  8. CABOMETYX [Suspect]
     Active Substance: CABOZANTINIB S-MALATE
     Indication: RENAL CANCER
     Dosage: 60 MG, QD
     Route: 048
     Dates: start: 201803
  9. CLONIDINE. [Concomitant]
     Active Substance: CLONIDINE
  10. OXYCODONE [Concomitant]
     Active Substance: OXYCODONE
  11. HYDROCHLOROTHIAZIDE. [Concomitant]
     Active Substance: HYDROCHLOROTHIAZIDE
  12. GABAPENTIN. [Concomitant]
     Active Substance: GABAPENTIN
  13. ZOFRAN [Concomitant]
     Active Substance: ONDANSETRON HYDROCHLORIDE
  14. MONTELUKAST [Concomitant]
     Active Substance: MONTELUKAST SODIUM
  15. DILACOR [Concomitant]
  16. ALPRAZOLAM. [Concomitant]
     Active Substance: ALPRAZOLAM
  17. TAMSULOSIN [Concomitant]
     Active Substance: TAMSULOSIN
  18. PROSCAR [Concomitant]
     Active Substance: FINASTERIDE
  19. TOPROL XL [Concomitant]
     Active Substance: METOPROLOL SUCCINATE
     Dosage: UNK
  20. CABOMETYX [Suspect]
     Active Substance: CABOZANTINIB S-MALATE
     Indication: METASTASES TO LUNG
  21. LISINOPRIL. [Concomitant]
     Active Substance: LISINOPRIL
  22. CARISOPRODOL. [Concomitant]
     Active Substance: CARISOPRODOL
  23. ALBUTEROL. [Concomitant]
     Active Substance: ALBUTEROL

REACTIONS (1)
  - Adverse drug reaction [Unknown]
